FAERS Safety Report 9206472 (Version 1)
Quarter: 2013Q1

REPORT INFORMATION
  Report Type: Spontaneous
  Country: US (occurrence: None)
  Receive Date: 20130329
  Receipt Date: 20130329
  Transmission Date: 20140127
  Serious: Yes (Other)
  Sender: FDA-Public Use
  Company Number: E2B_00000685

PATIENT
  Age: 60 Year
  Sex: Female
  Weight: 50 kg

DRUGS (5)
  1. SERTRALINE HYDROCHLORIDE [Suspect]
     Dosage: 100MG (100MG, 1 IN 1 D), PER ORAL
     Route: 048
     Dates: end: 20121212
  2. ALPRAZOLAM (XANAX) 1MG/3X PER DAY [Concomitant]
  3. CARISOPRODOL (SOMA) [Concomitant]
  4. OXYCODONE (TABLETS) [Concomitant]
  5. FENTANYL (PATCH) [Concomitant]

REACTIONS (6)
  - Depression [None]
  - Overdose [None]
  - Product solubility abnormal [None]
  - Product substitution issue [None]
  - Drug ineffective [None]
  - Condition aggravated [None]
